FAERS Safety Report 12137284 (Version 1)
Quarter: 2016Q1

REPORT INFORMATION
  Report Type: Spontaneous
  Country: MX (occurrence: None)
  Receive Date: 20160301
  Receipt Date: 20160301
  Transmission Date: 20160526
  Serious: Yes (Other)
  Sender: FDA-Public Use
  Company Number: None

PATIENT
  Age: 57 Year
  Sex: Male
  Weight: 96 kg

DRUGS (2)
  1. SCABISAN (PEOR ESTRINA) 5% CHINOIN [Suspect]
     Active Substance: PERMETHRIN
     Indication: ACARODERMATITIS
     Dosage: THANK COAT ALL OVER THE BODY QD TOPICAL
     Route: 061
     Dates: start: 20160229, end: 20160229
  2. SCABISAN (LINDANE) [Suspect]
     Active Substance: LINDANE

REACTIONS (1)
  - Vision blurred [None]

NARRATIVE: CASE EVENT DATE: 20160229
